FAERS Safety Report 19743513 (Version 9)
Quarter: 2022Q1

REPORT INFORMATION
  Report Type: Other
  Country: GB (occurrence: GB)
  Receive Date: 20210825
  Receipt Date: 20220311
  Transmission Date: 20220423
  Serious: Yes (Death, Life-Threatening, Hospitalization, Other)
  Sender: FDA-Public Use
  Company Number: GB-ROCHE-2677215

PATIENT
  Age: 71 Year
  Sex: Female
  Weight: 54 kg

DRUGS (86)
  1. AMLODIPINE [Suspect]
     Active Substance: AMLODIPINE BESYLATE
     Indication: Hypertension
     Dosage: 1 MILLIGRAM, QD, ONCE A DAY
     Route: 065
  2. AMLODIPINE [Suspect]
     Active Substance: AMLODIPINE BESYLATE
     Dosage: 1, QD
     Route: 065
  3. AMLODIPINE [Suspect]
     Active Substance: AMLODIPINE BESYLATE
     Dosage: UNK, 1 PER DAY
     Route: 065
  4. AMLODIPINE [Suspect]
     Active Substance: AMLODIPINE BESYLATE
     Dosage: UNK, 1 PER DAY
     Route: 065
  5. AMLODIPINE [Suspect]
     Active Substance: AMLODIPINE BESYLATE
     Dosage: UNK, QD
     Route: 065
  6. AMLODIPINE [Suspect]
     Active Substance: AMLODIPINE BESYLATE
     Dosage: 1, QD
     Route: 065
  7. AMLODIPINE [Suspect]
     Active Substance: AMLODIPINE BESYLATE
     Dosage: UNK
  8. AMLODIPINE [Suspect]
     Active Substance: AMLODIPINE BESYLATE
     Dosage: 1, QD
     Route: 065
  9. AMLODIPINE [Suspect]
     Active Substance: AMLODIPINE BESYLATE
     Dosage: 1, QD
     Route: 065
  10. CARBOPLATIN [Suspect]
     Active Substance: CARBOPLATIN
     Indication: Non-small cell lung cancer
     Dosage: 450 MILLIGRAM, PER DAY (STARTED ON 29 JUL 2020)
     Route: 065
  11. CARBOPLATIN [Suspect]
     Active Substance: CARBOPLATIN
     Dosage: 450 MILLIGRAM UNK (ENDOTRACHEOPULMONARY INSTILLATION, POWDER FOR SOLUTION 450 MG, ONCE PER DAY)
     Route: 065
  12. CARBOPLATIN [Suspect]
     Active Substance: CARBOPLATIN
     Dosage: 450 MILLIGRAM, PER DAY (STARTED ON 29 JUL 2020)
     Route: 065
  13. CIPROFLOXACIN [Suspect]
     Active Substance: CIPROFLOXACIN
     Indication: Prophylaxis
     Dosage: 1, BID (STARTED ON 27 AUG 2020)
     Route: 065
  14. DEXAMETHASONE [Suspect]
     Active Substance: DEXAMETHASONE
     Indication: Dysphagia
     Dosage: 1 MILLIGRAM, PER DAY (STARTED ON 26 AUG 2020)
     Route: 065
  15. DEXAMETHASONE [Suspect]
     Active Substance: DEXAMETHASONE
     Dosage: 1 UNKUNK, ONCE PER DAY (STARTED ON 26 AUG 2020)
     Route: 065
  16. ETOPOSIDE [Suspect]
     Active Substance: ETOPOSIDE
     Indication: Non-small cell lung cancer
     Dosage: 148 MILLIGRAM PER DAY (STARTED ON 29-JUL-2020)
     Route: 065
  17. ETOPOSIDE [Suspect]
     Active Substance: ETOPOSIDE
     Dosage: 600 MILLIGRAM PER DAY (STARTED ON 30-JUL-2020)
     Route: 048
  18. AMOXICILLIN [Suspect]
     Active Substance: AMOXICILLIN
     Indication: Product used for unknown indication
     Dosage: 1 UNK, EVERY 6 HRS (STARTED ON 10 AUG 2020 TO 16 AUG 2020)
     Route: 065
  19. AMOXICILLIN [Suspect]
     Active Substance: AMOXICILLIN
     Dosage: 1 DOSAGE FORM, PER DAY (STARTED FROM 10 AUG 2020 TILL 16 AUG 2020)
     Route: 065
  20. AMOXICILLIN [Suspect]
     Active Substance: AMOXICILLIN
     Dosage: 1 UNK, QID (STARTED ON 10 AUG 2020 TO 16-AUG-2020)
     Route: 065
  21. AMOXICILLIN [Suspect]
     Active Substance: AMOXICILLIN
     Dosage: UNK, 4 TIMES PER DAY
     Route: 065
  22. MORPHINE SULFATE [Suspect]
     Active Substance: MORPHINE SULFATE
     Indication: Prophylaxis
     Dosage: UNK, (STARTED ON 27 JUL 2020)
     Route: 065
  23. MORPHINE SULFATE [Suspect]
     Active Substance: MORPHINE SULFATE
     Indication: Pain
     Dosage: UNK (ORAMORPH) PER DAY (STARTED ON 27 JUL 2020)
     Route: 065
  24. MORPHINE SULFATE [Suspect]
     Active Substance: MORPHINE SULFATE
     Dosage: UNK, (STARTED ON 25 AUG 2020)
     Route: 065
  25. MORPHINE SULFATE [Suspect]
     Active Substance: MORPHINE SULFATE
     Dosage: 1, BID (STARTED ON 31 JUL 2020)
     Route: 065
  26. MORPHINE SULFATE [Suspect]
     Active Substance: MORPHINE SULFATE
     Dosage: 1, PER DAY (STARTED ON 31 JUL 2020)
     Route: 065
  27. MORPHINE SULFATE [Suspect]
     Active Substance: MORPHINE SULFATE
     Dosage: 1 MILLIGRAM, QD (STARTED ON 27-JUL-2020)
     Route: 065
  28. MORPHINE SULFATE [Suspect]
     Active Substance: MORPHINE SULFATE
     Dosage: UNK, (STARTED ON 27 JUL 2020)
     Route: 065
  29. ATEZOLIZUMAB [Suspect]
     Active Substance: ATEZOLIZUMAB
     Indication: Non-small cell lung cancer
     Dosage: 1200 MILLIGRAM EVERY 3 WEEKS (STARTED ON 29 JUL 2020)
     Route: 041
  30. ATEZOLIZUMAB [Suspect]
     Active Substance: ATEZOLIZUMAB
     Indication: Transitional cell carcinoma
     Dosage: UNK
     Route: 065
  31. ATEZOLIZUMAB [Suspect]
     Active Substance: ATEZOLIZUMAB
     Indication: Small cell lung cancer
     Dosage: 1200 MILLIGRAM (19 AUG 2020)
     Route: 042
  32. ATEZOLIZUMAB [Suspect]
     Active Substance: ATEZOLIZUMAB
     Dosage: UNK
     Route: 065
  33. ATEZOLIZUMAB [Suspect]
     Active Substance: ATEZOLIZUMAB
     Dosage: UNK
     Route: 065
  34. CLOPIDOGREL [Suspect]
     Active Substance: CLOPIDOGREL BISULFATE
     Indication: Hypertension
     Dosage: 1 , ONCE A DAY
     Route: 065
  35. CLOPIDOGREL [Suspect]
     Active Substance: CLOPIDOGREL BISULFATE
     Dosage: UNK, ONCE PER DAY
     Route: 065
  36. CYCLIZINE [Suspect]
     Active Substance: CYCLIZINE
     Indication: Vomiting
     Dosage: 4 (UNIT UNKNOWN) PER DAY
     Route: 065
  37. CYCLIZINE [Suspect]
     Active Substance: CYCLIZINE
     Indication: Neutropenic sepsis
     Dosage: 1, 0.3 DAY (1 IN 0.25 DAY)
     Route: 065
  38. CYCLIZINE [Suspect]
     Active Substance: CYCLIZINE
     Dosage: 1 UNK, EVERY 6 HRS
     Route: 065
  39. CYCLIZINE [Suspect]
     Active Substance: CYCLIZINE
     Dosage: UNK
     Route: 065
  40. CYCLIZINE [Suspect]
     Active Substance: CYCLIZINE
     Dosage: UNK
     Route: 065
  41. CYCLIZINE [Suspect]
     Active Substance: CYCLIZINE
     Dosage: 4 MILLIGRAM, ONCE A DAY
     Route: 065
  42. CYCLIZINE [Suspect]
     Active Substance: CYCLIZINE
     Dosage: UNK, 2 TIMES PER DAY
     Route: 065
  43. BENZYDAMINE HYDROCHLORIDE [Suspect]
     Active Substance: BENZYDAMINE HYDROCHLORIDE
     Indication: Prophylaxis
     Dosage: UNK (STARTED ON 19 AUG 2020)
     Route: 065
  44. FLUCONAZOLE [Suspect]
     Active Substance: FLUCONAZOLE
     Indication: Candida infection
     Dosage: 1, ONCE A DAY
     Route: 065
  45. FLUCONAZOLE [Suspect]
     Active Substance: FLUCONAZOLE
     Dosage: UNK
     Route: 065
  46. FORMOTEROL [Suspect]
     Active Substance: FORMOTEROL
     Indication: Hypertension
     Dosage: 1 MILLIGRAM, BID (STARTED ON 01 MAR 2020)
     Route: 065
  47. FORMOTEROL [Suspect]
     Active Substance: FORMOTEROL
     Dosage: 1 PER DAY (STARTED ON 01 MAR 2020)
     Route: 065
  48. FORMOTEROL [Suspect]
     Active Substance: FORMOTEROL
     Dosage: 0.5 MILLIGRAM, BID (STARTED ON 01 MAR 2020)
     Route: 065
  49. FORMOTEROL [Suspect]
     Active Substance: FORMOTEROL
     Dosage: 2 PER DAY (STARTED ON 01 MAR 2020)
     Route: 065
  50. LACTULOSE [Suspect]
     Active Substance: LACTULOSE
     Indication: Prophylaxis
     Dosage: 1 UNK, BID
     Route: 065
  51. LACTULOSE [Suspect]
     Active Substance: LACTULOSE
     Dosage: 1 UNK, PER DAY
     Route: 065
  52. LACTULOSE [Suspect]
     Active Substance: LACTULOSE
     Dosage: 1 UNK, BID
     Route: 065
  53. LACTULOSE [Suspect]
     Active Substance: LACTULOSE
     Dosage: 1 UNK, EVERY 12 HRS
     Route: 065
  54. LACTULOSE [Suspect]
     Active Substance: LACTULOSE
     Dosage: 1 UNK, QD
     Route: 065
  55. LACTULOSE [Suspect]
     Active Substance: LACTULOSE
     Dosage: 1 UNK, BID
     Route: 065
  56. LACTULOSE [Suspect]
     Active Substance: LACTULOSE
     Dosage: 1 UNK, BID
     Route: 065
  57. LACTULOSE [Suspect]
     Active Substance: LACTULOSE
     Dosage: UNK, 2 TIMES PER DAY
     Route: 065
  58. LACTULOSE [Suspect]
     Active Substance: LACTULOSE
     Dosage: UNK, 2 TIMES PER DAY
     Route: 065
  59. LANSOPRAZOLE [Suspect]
     Active Substance: LANSOPRAZOLE
     Indication: Prophylaxis
     Dosage: 1 MG PER DAY (STARTED ON 01 JAN 2017)
     Route: 065
  60. LINEZOLID [Suspect]
     Active Substance: LINEZOLID
     Indication: Neutropenic sepsis
     Dosage: UNK (STARTED ON 30 AUG 2020)
     Route: 065
  61. ALBUTEROL [Suspect]
     Active Substance: ALBUTEROL
     Indication: Prophylaxis
     Dosage: UNK
     Route: 065
  62. ACETAMINOPHEN\CODEINE PHOSPHATE [Suspect]
     Active Substance: ACETAMINOPHEN\CODEINE PHOSPHATE
     Indication: Headache
     Dosage: 1 UNK, BID
     Route: 065
  63. ACETAMINOPHEN\CODEINE PHOSPHATE [Suspect]
     Active Substance: ACETAMINOPHEN\CODEINE PHOSPHATE
     Indication: Pain
     Dosage: 1 UNK, PER DAY
     Route: 065
  64. ACETAMINOPHEN\CODEINE PHOSPHATE [Suspect]
     Active Substance: ACETAMINOPHEN\CODEINE PHOSPHATE
     Dosage: 0.5 MILLIGRAM, QD
     Route: 065
  65. ACETAMINOPHEN\CODEINE PHOSPHATE [Suspect]
     Active Substance: ACETAMINOPHEN\CODEINE PHOSPHATE
     Dosage: 2 UNK, BID
     Route: 065
  66. VENLAFAXINE [Suspect]
     Active Substance: VENLAFAXINE HYDROCHLORIDE
     Indication: Depression
     Dosage: 1 UNK, PER DAY, (STARTED ON 20-AUG-2020)
     Route: 065
  67. VENLAFAXINE [Suspect]
     Active Substance: VENLAFAXINE HYDROCHLORIDE
     Dosage: 1, BID (STARTED ON 20 AUG 2020)
     Route: 065
  68. VENLAFAXINE [Suspect]
     Active Substance: VENLAFAXINE HYDROCHLORIDE
     Dosage: 1 UNK, PER DAY
     Route: 065
  69. VENLAFAXINE [Suspect]
     Active Substance: VENLAFAXINE HYDROCHLORIDE
     Dosage: 1 UNK, PER DAY (STARTED ON 20 AUG 2020)
     Route: 065
  70. VENLAFAXINE [Suspect]
     Active Substance: VENLAFAXINE HYDROCHLORIDE
     Dosage: 1 MILLIGRAM, BID
     Route: 065
  71. VENLAFAXINE [Suspect]
     Active Substance: VENLAFAXINE HYDROCHLORIDE
     Dosage: UNK
     Route: 065
  72. VORICONAZOLE [Suspect]
     Active Substance: VORICONAZOLE
     Indication: Neutropenic sepsis
     Dosage: 1 UNK, PER DAY (STARTED ON 30 AUG 2020)
     Route: 065
  73. ZOPICLONE [Suspect]
     Active Substance: ZOPICLONE
     Indication: Prophylaxis
     Dosage: 1 UNK, PER DAY (STARTED ON 31 JUL 2020)
     Route: 065
  74. ZOPICLONE [Suspect]
     Active Substance: ZOPICLONE
     Dosage: 1 UNK, PER DAY
     Route: 065
  75. SPIRIVA [Suspect]
     Active Substance: TIOTROPIUM BROMIDE MONOHYDRATE
     Indication: Chronic obstructive pulmonary disease
     Dosage: 1 UNK, PER DAY
     Route: 065
  76. SPIRIVA [Suspect]
     Active Substance: TIOTROPIUM BROMIDE MONOHYDRATE
     Dosage: 1 UNK, QD
     Route: 065
  77. SPIRIVA [Suspect]
     Active Substance: TIOTROPIUM BROMIDE MONOHYDRATE
     Dosage: 1 UNK, QD
     Route: 065
  78. SPIRIVA [Suspect]
     Active Substance: TIOTROPIUM BROMIDE MONOHYDRATE
     Dosage: UNK
     Route: 065
  79. MAGNESIUM [Concomitant]
     Active Substance: MAGNESIUM
     Indication: Product used for unknown indication
     Dosage: UNK (STARTED ON 19 AUG 2020 TO 19 AUG 2020)
     Route: 065
  80. METOCLOPRAMIDE [Concomitant]
     Active Substance: METOCLOPRAMIDE
     Indication: Vomiting
     Dosage: UNK, PER DAY (QD)
     Route: 065
  81. METOCLOPRAMIDE [Concomitant]
     Active Substance: METOCLOPRAMIDE
     Dosage: UNK, PER DAY
     Route: 065
  82. POTASSIUM BICARBONATE\POTASSIUM CHLORIDE [Concomitant]
     Active Substance: POTASSIUM BICARBONATE\POTASSIUM CHLORIDE
     Indication: Prophylaxis
     Dosage: 1 UNK, BID (STARTED ON 19 AUG 2020)
     Route: 065
  83. POTASSIUM BICARBONATE\POTASSIUM CHLORIDE [Concomitant]
     Active Substance: POTASSIUM BICARBONATE\POTASSIUM CHLORIDE
     Dosage: 5 UNK, PER DAY (STARTED ON 28 AUG 2020 TO 01 SEP 2020)
     Route: 065
  84. POTASSIUM BICARBONATE\POTASSIUM CHLORIDE [Concomitant]
     Active Substance: POTASSIUM BICARBONATE\POTASSIUM CHLORIDE
     Dosage: 2 UNK, BID (STARTED ON 19 AUG 2020)
     Route: 065
  85. POTASSIUM BICARBONATE\POTASSIUM CHLORIDE [Concomitant]
     Active Substance: POTASSIUM BICARBONATE\POTASSIUM CHLORIDE
     Dosage: UNK,  UNK (5QD)
     Route: 065
  86. SODIUM PHOSPHATE [Concomitant]
     Active Substance: SODIUM PHOSPHATE
     Indication: Product used for unknown indication
     Dosage: 1 UNK, PER DAY (STARTED ON 25 AUG 2020 TO 25 AUG 2020)
     Route: 065

REACTIONS (30)
  - Death [Fatal]
  - Nervous system disorder [Fatal]
  - Gait disturbance [Fatal]
  - Asthenia [Fatal]
  - Dehydration [Fatal]
  - Mucosal inflammation [Fatal]
  - Productive cough [Fatal]
  - Dysphagia [Fatal]
  - Mouth ulceration [Fatal]
  - Constipation [Fatal]
  - Hypomagnesaemia [Fatal]
  - Hypomagnesaemia [Fatal]
  - Headache [Fatal]
  - Hypokalaemia [Fatal]
  - Anaemia [Fatal]
  - Anaemia [Fatal]
  - Vomiting [Fatal]
  - Diarrhoea [Fatal]
  - Dyspnoea [Fatal]
  - Nausea [Fatal]
  - Depression [Fatal]
  - Skin candida [Fatal]
  - Neutropenic sepsis [Fatal]
  - Candida infection [Fatal]
  - Vomiting [Fatal]
  - Neutrophil count decreased [Fatal]
  - Decreased appetite [Fatal]
  - Balance disorder [Fatal]
  - Drug ineffective [Fatal]
  - Off label use [Unknown]

NARRATIVE: CASE EVENT DATE: 20200730
